FAERS Safety Report 4763737-0 (Version None)
Quarter: 2005Q3

REPORT INFORMATION
  Report Type: 
  Country: None (occurrence: None)
  Receive Date: 20050908
  Receipt Date: 20040727
  Transmission Date: 20060218
  Serious: Yes (Hospitalization)
  Sender: FDA-Public Use
  Company Number: CH-BRACCO-BRO-007664

PATIENT
  Age: 74 Year
  Sex: Female

DRUGS (20)
  1. PROHANCE [Suspect]
     Indication: ANGIOPLASTY
     Route: 013
     Dates: start: 20040617, end: 20040617
  2. PROHANCE [Suspect]
     Route: 013
     Dates: start: 20040617, end: 20040617
  3. ULTRAVIST [Suspect]
     Route: 013
     Dates: start: 20040617, end: 20040617
  4. ASPIRIN [Concomitant]
     Route: 048
  5. COVERSUM                                /GFR/ [Concomitant]
     Route: 048
     Dates: end: 20040621
  6. NITRODERM [Concomitant]
     Route: 062
  7. PRAVASTATIN SODIUM [Concomitant]
     Route: 048
  8. TOREM                                   /GFR/ [Concomitant]
     Route: 048
     Dates: end: 20040621
  9. INSULATARD NPH HUMAN [Concomitant]
     Route: 058
  10. ACTRAPID MC [Concomitant]
     Route: 058
  11. MEPHANOL [Concomitant]
     Route: 048
     Dates: end: 20040618
  12. HYGROTON [Concomitant]
     Route: 048
     Dates: end: 20040621
  13. RECORMON [Concomitant]
     Route: 058
  14. CA-ACETAT [Concomitant]
     Route: 048
  15. BELOCK [Concomitant]
     Route: 048
  16. ALUCOL [Concomitant]
     Route: 048
  17. ALUCOL [Concomitant]
     Dosage: 1125 MG+ 525 MG
     Route: 048
  18. HYDROCHLOROTIAZIDE [Concomitant]
     Route: 050
  19. ACETYLCYSTEINE [Interacting]
     Route: 048
  20. NACL [Interacting]
     Route: 042

REACTIONS (5)
  - FATIGUE [None]
  - GENERAL PHYSICAL HEALTH DETERIORATION [None]
  - NAUSEA [None]
  - RENAL FAILURE [None]
  - VOMITING [None]
